FAERS Safety Report 5109192-2 (Version None)
Quarter: 2006Q3

REPORT INFORMATION
  Report Type: 
  Country: None (occurrence: None)
  Receive Date: 20060918
  Receipt Date: 20060829
  Transmission Date: 20061208
  Serious: Yes (Death, Hospitalization)
  Sender: FDA-Public Use
  Company Number: US200606002369

PATIENT
  Age: 85 Year
  Sex: Female
  Weight: 39.9 kg

DRUGS (2)
  1. FORTEO [Suspect]
     Indication: OSTEOPOROSIS
     Dosage: 20 UG, DAILY (1/D)
     Dates: start: 20040825, end: 20051101
  2. FORTEO [Concomitant]

REACTIONS (4)
  - DYSPHONIA [None]
  - HYPOXIA [None]
  - LUNG CANCER METASTATIC [None]
  - WEIGHT DECREASED [None]
